FAERS Safety Report 24328116 (Version 1)
Quarter: 2024Q3

REPORT INFORMATION
  Report Type: Spontaneous
  Country: US (occurrence: None)
  Receive Date: 20240916
  Receipt Date: 20240916
  Transmission Date: 20241017
  Serious: Yes (Other)
  Sender: Public
  Company Number: None

PATIENT
  Age: 48 Year
  Sex: Female
  Weight: 54 kg

DRUGS (1)
  1. LUBRICANT EYE DROPS [Suspect]
     Active Substance: POLYETHYLENE GLYCOL 400\PROPYLENE GLYCOL
     Indication: Superficial injury of eye
     Dosage: FREQUENCY : AS NEEDED?
     Route: 047
     Dates: start: 20240226, end: 20240227

REACTIONS (4)
  - Eye infection [None]
  - Pseudomonas infection [None]
  - Blindness unilateral [None]
  - Eye colour change [None]

NARRATIVE: CASE EVENT DATE: 20240227
